FAERS Safety Report 9423415 (Version 1)
Quarter: 2013Q3

REPORT INFORMATION
  Report Type: Spontaneous
  Country: US (occurrence: US)
  Receive Date: 20130726
  Receipt Date: 20130726
  Transmission Date: 20140515
  Serious: No
  Sender: FDA-Public Use
  Company Number: US-GALDERMA-US-GDP-10407570

PATIENT
  Age: 22 Year
  Sex: Female

DRUGS (4)
  1. DIFFERIN [Suspect]
     Indication: ACNE
     Route: 061
     Dates: start: 20100222, end: 20100223
  2. PROTOPIC [Concomitant]
     Indication: ECZEMA
     Route: 061
     Dates: end: 20100223
  3. DUAC CS CONVENIENCE KIT STI [Concomitant]
  4. TRIAMCINOLONE [Concomitant]

REACTIONS (7)
  - Swelling face [Recovered/Resolved]
  - Eyelid oedema [Recovered/Resolved]
  - Skin tightness [Recovered/Resolved]
  - Erythema [Recovered/Resolved]
  - Skin burning sensation [Recovered/Resolved]
  - Dry skin [Recovered/Resolved]
  - Skin irritation [Recovered/Resolved]
